FAERS Safety Report 6260383-7 (Version None)
Quarter: 2009Q3

REPORT INFORMATION
  Report Type: 
  Country: None (occurrence: None)
  Receive Date: 20090708
  Receipt Date: 20090702
  Transmission Date: 20100115
  Serious: Yes (Death, Other)
  Sender: FDA-Public Use
  Company Number: US-CELGENEUS-163-50794-09070172

PATIENT

DRUGS (5)
  1. VIDAZA [Suspect]
     Indication: MYELOFIBROSIS
     Route: 058
     Dates: start: 20050601, end: 20060501
  2. ANAGRELIDE HCL [Concomitant]
     Indication: PLATELET COUNT INCREASED
     Route: 065
  3. ANAGRELIDE HCL [Concomitant]
  4. HYDROXYUREA [Concomitant]
     Indication: PLATELET COUNT INCREASED
     Route: 065
  5. HYDROXYUREA [Concomitant]

REACTIONS (19)
  - ANAEMIA [None]
  - ARTHRALGIA [None]
  - CARDIAC ARREST [None]
  - DIARRHOEA [None]
  - FATIGUE [None]
  - FEBRILE NEUTROPENIA [None]
  - HYPERURICAEMIA [None]
  - INFECTION [None]
  - INJECTION SITE REACTION [None]
  - MUCOSAL INFLAMMATION [None]
  - NAUSEA [None]
  - NEUTROPENIA [None]
  - NO THERAPEUTIC RESPONSE [None]
  - OEDEMA [None]
  - PYREXIA [None]
  - RASH [None]
  - SUBDURAL HAEMATOMA [None]
  - THROMBOCYTOPENIA [None]
  - VOMITING [None]
